FAERS Safety Report 22400329 (Version 2)
Quarter: 2023Q2

REPORT INFORMATION
  Report Type: Spontaneous
  Country: RU (occurrence: RU)
  Receive Date: 20230602
  Receipt Date: 20230612
  Transmission Date: 20230722
  Serious: Yes (Death, Life-Threatening, Hospitalization, Disabling, Other)
  Sender: FDA-Public Use
  Company Number: RU-BAYER-2023A074526

PATIENT
  Age: 26 Year
  Sex: Female
  Weight: 55 kg

DRUGS (5)
  1. DROSPIRENONE\ETHINYL ESTRADIOL [Suspect]
     Active Substance: DROSPIRENONE\ETHINYL ESTRADIOL
     Indication: Heavy menstrual bleeding
     Dosage: 1 DF, QD
     Route: 048
     Dates: start: 2015, end: 20230516
  2. DROSPIRENONE\ETHINYL ESTRADIOL [Suspect]
     Active Substance: DROSPIRENONE\ETHINYL ESTRADIOL
     Indication: Dermoid cyst
  3. CHLOROPYRAMINE [Concomitant]
     Active Substance: CHLOROPYRAMINE
     Indication: Urticaria
     Dosage: 20 MG
     Route: 030
     Dates: start: 20230510, end: 20230515
  4. SODIUM THIOSULFATE [Concomitant]
     Active Substance: SODIUM THIOSULFATE
     Indication: Urticaria
     Dosage: 3000 MG
     Route: 042
     Dates: start: 20230510, end: 20230515
  5. DEXAMETHASONE [Interacting]
     Active Substance: DEXAMETHASONE
     Indication: Urticaria
     Dosage: 4 MG
     Dates: start: 20230510, end: 20230515

REACTIONS (7)
  - Haemorrhagic transformation stroke [Fatal]
  - Carotid artery occlusion [Fatal]
  - Brain oedema [Fatal]
  - Off label use [None]
  - Cardiac arrest [None]
  - Multiple organ dysfunction syndrome [None]
  - Cardiovascular insufficiency [None]

NARRATIVE: CASE EVENT DATE: 20150101
